FAERS Safety Report 4799106-7 (Version None)
Quarter: 2005Q4

REPORT INFORMATION
  Report Type: 
  Country: None (occurrence: None)
  Receive Date: 20051013
  Receipt Date: 20050927
  Transmission Date: 20060501
  Serious: Yes (Life-Threatening, Hospitalization, Other)
  Sender: FDA-Public Use
  Company Number: 2005-01493

PATIENT
  Age: 58 Year
  Sex: 0

DRUGS (5)
  1. VELCADE [Suspect]
     Indication: MULTIPLE MYELOMA
     Dosage: 2/WEEK, INTRAVENOUS
     Route: 042
  2. DEXAMETHASONE [Suspect]
     Indication: MULTIPLE MYELOMA
     Dosage: QD, ORAL
     Route: 048
  3. ADRIAMYCIN(ADRIAMYCIN) VIAL [Suspect]
     Indication: MULTIPLE MYELOMA
     Dosage: QD, ORAL
     Route: 048
  4. PALLADONE [Concomitant]
  5. CELEBREX [Concomitant]

REACTIONS (6)
  - DEEP VEIN THROMBOSIS [None]
  - DRUG TOXICITY [None]
  - MYOCARDITIS [None]
  - PULMONARY EMBOLISM [None]
  - VENTRICULAR DYSFUNCTION [None]
  - VENTRICULAR HYPERTROPHY [None]
